FAERS Safety Report 12495692 (Version 1)
Quarter: 2016Q2

REPORT INFORMATION
  Report Type: Spontaneous
  Country: US (occurrence: US)
  Receive Date: 20160624
  Receipt Date: 20160624
  Transmission Date: 20160815
  Serious: Yes (Hospitalization)
  Sender: FDA-Public Use
  Company Number: US-TARO PHARMACEUTICALS USA.,INC-2016SUN00324

PATIENT
  Age: 57 Year
  Sex: Female

DRUGS (2)
  1. CALCIUM SUPPLEMENTATION [Concomitant]
     Indication: HYPOPARATHYROIDISM
  2. WARFARIN [Suspect]
     Active Substance: WARFARIN
     Indication: ATRIAL FIBRILLATION
     Dosage: UNK
     Route: 065

REACTIONS (3)
  - Dry gangrene [Unknown]
  - Calciphylaxis [Unknown]
  - Purpura [Unknown]
